FAERS Safety Report 7781101-7 (Version None)
Quarter: 2011Q3

REPORT INFORMATION
  Report Type: 
  Country: None (occurrence: None)
  Receive Date: 20110927
  Receipt Date: 20110921
  Transmission Date: 20111222
  Serious: Yes (Death)
  Sender: FDA-Public Use
  Company Number: PHHY2011MA83746

PATIENT
  Age: 80 Year
  Sex: Female
  Weight: 96 kg

DRUGS (6)
  1. VALSARTAN  AND HYDROCHLOROTHIAZIDE [Suspect]
     Indication: HYPERTENSION
     Dosage: UNK UKN, UNK
     Dates: start: 20090815
  2. DIGOXIN [Concomitant]
     Dosage: UNK UKN, UNK
     Dates: start: 20080901
  3. SIMVASTATIN [Concomitant]
     Indication: HYPERCHOLESTEROLAEMIA
     Dosage: UNK UKN, UNK
     Dates: start: 20071001
  4. INSULIN [Concomitant]
     Indication: DIABETES MELLITUS
     Dosage: UNK UKN, UNK
     Dates: start: 20010101
  5. ACETYLSALICYLIC ACID SRT [Concomitant]
     Indication: PROPHYLAXIS
     Dosage: UNK UKN, UNK
     Dates: start: 20080901
  6. VASTAREL [Concomitant]
     Indication: VERTIGO
     Dosage: 35 MG, UNK
     Dates: start: 20080816

REACTIONS (1)
  - DEATH [None]
